FAERS Safety Report 16882310 (Version 1)
Quarter: 2019Q4

REPORT INFORMATION
  Report Type: Spontaneous
  Country: US (occurrence: US)
  Receive Date: 20191003
  Receipt Date: 20191003
  Transmission Date: 20200122
  Serious: No
  Sender: FDA-Public Use
  Company Number: US-JNJFOC-20190932808

PATIENT
  Age: 53 Year

DRUGS (2)
  1. NIZATIDINE. [Concomitant]
     Active Substance: NIZATIDINE
     Indication: DEPRESSION
     Route: 065
  2. SYMTUZA [Suspect]
     Active Substance: COBICISTAT\DARUNAVIR\EMTRICITABINE\TENOFOVIR ALAFENAMIDE
     Indication: HIV INFECTION
     Dosage: 800MG DRV, 150MG COBI, 200MG, FTZ, TAF 10MG/ PO-ORAL
     Route: 048

REACTIONS (3)
  - Nausea [Recovered/Resolved]
  - Vomiting [Recovered/Resolved]
  - Dizziness [Recovered/Resolved]
